FAERS Safety Report 4920815-0 (Version None)
Quarter: 2006Q1

REPORT INFORMATION
  Report Type: 
  Country: None (occurrence: None)
  Receive Date: 20060217
  Receipt Date: 20060206
  Transmission Date: 20060701
  Serious: No
  Sender: FDA-Public Use
  Company Number: 06H-163-0304921-00

PATIENT
  Sex: 0

DRUGS (10)
  1. ETOPOSIDE INJECTION (ETOPOSIDE) (ETOPOSIDE) [Suspect]
     Indication: CHEMOTHERAPY
     Dosage: 600 MG/M2, PER DAY, INTRAVENOUS
     Route: 042
  2. CYCLOPHOSPHAMIDE [Suspect]
     Indication: CHEMOTHERAPY
     Dosage: 200 MG/M2, PER DAY, INTRAVENOUS
     Route: 042
  3. CARBOPLATIN [Suspect]
     Indication: CHEMOTHERAPY
     Dosage: 333 MG/M2, PER DAY, CONTINUOUS IV INFUSION
     Route: 042
  4. AMIFOSTINE (AMIFOSTINE) [Suspect]
     Indication: MUCOSAL INFLAMMATION
     Dosage: 500 MG/M2, PER DAY, INTRAVENOUS
     Route: 042
  5. ANTIEMETIC (ANTIEMETICS AND ANTINAUSEANTS) [Concomitant]
  6. HYDRATION [Concomitant]
  7. GRANULOCYTE COLONY STIMULATING FACTOR (GRANULOCYTE COLONY STIMULATING [Concomitant]
  8. CIPROFLOXACIN [Concomitant]
  9. VANCOMYCIN [Concomitant]
  10. CEFEPIME (CEFEPIME) [Concomitant]

REACTIONS (1)
  - PERICARDIAL EFFUSION [None]
